FAERS Safety Report 6466351-4 (Version None)
Quarter: 2009Q4

REPORT INFORMATION
  Report Type: 
  Country: None (occurrence: None)
  Receive Date: 20091127
  Receipt Date: 20091119
  Transmission Date: 20100525
  Serious: Yes (Disabling)
  Sender: FDA-Public Use
  Company Number: DSA_41671_2009

PATIENT
  Sex: Female

DRUGS (4)
  1. XENAZINE [Suspect]
     Indication: PARKINSON'S DISEASE
     Dosage: 12.5 MG BID ORAL
     Route: 048
     Dates: start: 20090902, end: 20090903
  2. ENABLEX /01760401/ [Concomitant]
  3. ALEVE [Concomitant]
  4. PHENYLEPHRINE HYDROCHLORIDE [Concomitant]

REACTIONS (3)
  - CRYING [None]
  - MUSCULOSKELETAL STIFFNESS [None]
  - PARALYSIS [None]
